FAERS Safety Report 8116759-6 (Version None)
Quarter: 2012Q1

REPORT INFORMATION
  Report Type: 
  Country: None (occurrence: None)
  Receive Date: 20120206
  Receipt Date: 20120127
  Transmission Date: 20120608
  Serious: Yes (Hospitalization)
  Sender: FDA-Public Use
  Company Number: US-BAYER-2011-060325

PATIENT
  Age: 19 Year
  Sex: Female

DRUGS (1)
  1. YAZ [Suspect]
     Dosage: UNK
     Dates: start: 20081001, end: 20090801

REACTIONS (5)
  - CHOLECYSTECTOMY [None]
  - INJURY [None]
  - ABDOMINAL PAIN UPPER [None]
  - GASTRITIS [None]
  - EMOTIONAL DISTRESS [None]
